FAERS Safety Report 8089343-0 (Version None)
Quarter: 2012Q1

REPORT INFORMATION
  Report Type: 
  Country: None (occurrence: None)
  Receive Date: 20120128
  Receipt Date: 20110701
  Transmission Date: 20120608
  Serious: No
  Sender: FDA-Public Use
  Company Number: US-ABBOTT-11P-163-0835766-00

PATIENT
  Age: 45 Year
  Sex: Female

DRUGS (9)
  1. LEXAPRO [Concomitant]
     Indication: DEPRESSION
  2. VICODIN [Concomitant]
     Indication: PAIN
     Dosage: 5/500
  3. HUMIRA [Suspect]
     Indication: RHEUMATOID ARTHRITIS
     Dates: start: 20110617
  4. TRAMADOL HCL [Concomitant]
     Indication: PAIN
     Dosage: DAILY
  5. ENABLEX [Concomitant]
     Indication: URINARY INCONTINENCE
  6. LYRICA [Concomitant]
     Indication: FIBROMYALGIA
  7. PREDNISONE TAB [Concomitant]
     Indication: RHEUMATOID ARTHRITIS
  8. OMEPRAZOLE [Concomitant]
     Indication: ABDOMINAL DISCOMFORT
  9. SKELAXIN [Concomitant]
     Indication: MUSCLE RELAXANT THERAPY

REACTIONS (2)
  - INJECTION SITE NODULE [None]
  - INJECTION SITE HAEMORRHAGE [None]
